FAERS Safety Report 9210456 (Version 2)
Quarter: 2013Q2

REPORT INFORMATION
  Report Type: Report from Study
  Country: BE (occurrence: BE)
  Receive Date: 20130404
  Receipt Date: 20130614
  Transmission Date: 20140414
  Serious: Yes (Death, Life-Threatening, Hospitalization)
  Sender: FDA-Public Use
  Company Number: BE-CELGENEUS-013-C4047-13033695

PATIENT
  Age: 44 Year
  Sex: Male
  Weight: 67 kg

DRUGS (52)
  1. CC-4047 [Suspect]
     Indication: PLASMA CELL MYELOMA
     Dosage: 4 MILLIGRAM
     Route: 048
     Dates: start: 20130308, end: 20130325
  2. DEXAMETHASONE [Suspect]
     Indication: PLASMA CELL MYELOMA
     Route: 065
     Dates: start: 20130308, end: 20130325
  3. FENTANYL [Concomitant]
     Indication: PAIN
     Dosage: UG/H
     Route: 058
     Dates: start: 20130321
  4. DUOVENT [Concomitant]
     Indication: DYSPNOEA
     Dosage: DOSES
     Route: 055
     Dates: start: 20130321
  5. DUOVENT [Concomitant]
     Dosage: VIAL
     Route: 065
     Dates: start: 20130325, end: 20130404
  6. FILGRASTIM [Concomitant]
     Indication: NEUTROPENIA
     Dosage: MID
     Route: 058
     Dates: start: 20130314, end: 20130317
  7. PEGFILGRASTIM [Concomitant]
     Indication: NEUTROPENIA
     Dosage: 480 MILLIGRAM
     Route: 058
     Dates: start: 20130308, end: 20130321
  8. PANTOPRAZOLE [Concomitant]
     Indication: PROPHYLAXIS
     Dosage: 40 MILLIGRAM
     Route: 048
     Dates: end: 20130521
  9. LOGIMAT [Concomitant]
     Indication: HYPERTENSION
     Dosage: 47.5+ 5 MG
     Route: 048
     Dates: end: 20130510
  10. FLUCONAZOL [Concomitant]
     Indication: INFECTION PROPHYLAXIS
     Dosage: 200 MILLIGRAM
     Route: 048
  11. ACICLOVIR [Concomitant]
     Indication: INFECTION PROPHYLAXIS
     Dosage: 800 MILLIGRAM
     Route: 048
     Dates: start: 20130225, end: 20130521
  12. ACICLOVIR [Concomitant]
     Indication: SCAB
     Route: 065
     Dates: start: 20130408
  13. BENZODIAZIPIN [Concomitant]
     Indication: ANXIETY
     Route: 065
     Dates: end: 20130521
  14. DIFLUCAN [Concomitant]
     Indication: INFECTION PROPHYLAXIS
     Dosage: 200 MILLIGRAM
     Route: 065
     Dates: end: 20130521
  15. FOLAVIT [Concomitant]
     Indication: PROPHYLAXIS
     Dosage: 4 MILLIGRAM
     Route: 065
     Dates: end: 20130521
  16. PERIO AID [Concomitant]
     Indication: PROPHYLAXIS
     Dosage: 3 DOSAGE FORMS
     Route: 048
     Dates: end: 20130521
  17. MOXIFLOXACIN [Concomitant]
     Indication: NASOPHARYNGITIS
     Route: 065
     Dates: start: 20130214
  18. NEULASTA [Concomitant]
     Indication: NEUTROPHIL COUNT DECREASED
     Route: 065
     Dates: start: 20130304, end: 20130304
  19. NEULASTA [Concomitant]
     Route: 065
     Dates: start: 20130425, end: 20130425
  20. RANITIDINE [Concomitant]
     Indication: PROPHYLAXIS
     Dosage: 300 MILLIGRAM
     Route: 065
     Dates: start: 20130225, end: 20130226
  21. ALIZAPRIDE [Concomitant]
     Indication: PRODUCT USED FOR UNKNOWN INDICATION
     Route: 065
     Dates: start: 20130225, end: 20130308
  22. ONDANSETRON [Concomitant]
     Indication: PRODUCT USED FOR UNKNOWN INDICATION
     Dosage: 8 MILLIGRAM
     Route: 065
     Dates: start: 20130225, end: 20130226
  23. ENOXAPARIN [Concomitant]
     Indication: THROMBOSIS PROPHYLAXIS
     Dosage: 40 MILLIGRAM
     Route: 065
     Dates: start: 20130225, end: 20130225
  24. PLATELETS [Concomitant]
     Indication: PLATELET COUNT DECREASED
     Dosage: 1 BAG
     Route: 065
     Dates: end: 20130517
  25. RED BLOOD CELLS [Concomitant]
     Indication: HAEMOGLOBIN DECREASED
     Dosage: 1 BAG
     Route: 065
     Dates: end: 20130513
  26. LEVOFLOXACIN [Concomitant]
     Indication: INFECTION PROPHYLAXIS
     Dosage: 500 MILLIGRAM
     Route: 065
     Dates: start: 20130226, end: 20130226
  27. MULTIGAM [Concomitant]
     Indication: PROPHYLAXIS
     Route: 065
     Dates: start: 20130226, end: 20130226
  28. MULTIGAM [Concomitant]
     Route: 065
     Dates: start: 20130327, end: 20130327
  29. NEUPOGEN [Concomitant]
     Indication: NEUTROPHIL COUNT DECREASED
     Route: 065
     Dates: start: 20130227, end: 20130227
  30. NEUPOGEN [Concomitant]
     Route: 065
     Dates: start: 20130308, end: 20130308
  31. NEUPOGEN [Concomitant]
     Dosage: 480 MICROGRAM
     Route: 065
     Dates: start: 20130311, end: 20130313
  32. NEUPOGEN [Concomitant]
     Dosage: 300 MICROGRAM
     Route: 065
     Dates: start: 20130314, end: 20130317
  33. NEUPOGEN [Concomitant]
     Dosage: 480 MICROGRAM
     Route: 065
     Dates: start: 20130318, end: 20130324
  34. NEUPOGEN [Concomitant]
     Dosage: 48 MILLIGRAM
     Route: 065
     Dates: start: 20130418, end: 20130422
  35. PARACETAMOL [Concomitant]
     Indication: PAIN
     Route: 065
     Dates: start: 201303, end: 20130521
  36. MORFIN [Concomitant]
     Indication: PAIN
     Route: 048
     Dates: start: 20130307, end: 20130321
  37. MORFIN [Concomitant]
     Indication: BREAKTHROUGH PAIN
     Route: 061
     Dates: start: 20130324, end: 20130325
  38. MORFIN [Concomitant]
     Indication: BACK PAIN
     Route: 061
     Dates: start: 20130327, end: 20130409
  39. MORFIN [Concomitant]
     Route: 061
     Dates: start: 20130410, end: 201305
  40. MORFIN [Concomitant]
     Route: 048
     Dates: start: 20130502, end: 20130506
  41. MORFIN [Concomitant]
     Route: 061
     Dates: start: 20130506, end: 20130510
  42. MORFIN [Concomitant]
     Route: 048
     Dates: start: 20130505, end: 20130510
  43. MORFIN [Concomitant]
     Route: 061
     Dates: start: 20130510, end: 20130517
  44. MORFIN [Concomitant]
     Route: 048
     Dates: start: 20130510, end: 20130513
  45. MORFIN [Concomitant]
     Route: 048
     Dates: start: 20130513, end: 20130521
  46. MORFIN [Concomitant]
     Route: 061
     Dates: start: 20130517, end: 20130521
  47. BIOTENE [Concomitant]
     Indication: DRY MOUTH
     Route: 065
     Dates: start: 20130408
  48. MOVICOL [Concomitant]
     Indication: PRODUCT USED FOR UNKNOWN INDICATION
     Dosage: BAG
     Route: 065
     Dates: start: 20130326, end: 20130521
  49. CETRIZINE [Concomitant]
     Indication: PROPHYLAXIS
     Route: 065
     Dates: start: 20130324, end: 20130324
  50. CETRIZINE [Concomitant]
     Route: 065
     Dates: start: 20130331, end: 20130331
  51. HYDROCORTISONE [Concomitant]
     Indication: PROPHYLAXIS
     Route: 065
     Dates: start: 20130324, end: 20130324
  52. HYDROCORTISONE [Concomitant]
     Route: 065
     Dates: start: 20130331, end: 20130331

REACTIONS (2)
  - Pneumonia [Recovered/Resolved]
  - General physical health deterioration [Fatal]
